FAERS Safety Report 4280333-2 (Version None)
Quarter: 2004Q1

REPORT INFORMATION
  Report Type: 
  Country: None (occurrence: None)
  Receive Date: 20040126
  Receipt Date: 20040112
  Transmission Date: 20041129
  Serious: Yes (Hospitalization)
  Sender: FDA-Public Use
  Company Number: 2003-111344-NL

PATIENT
  Age: 24 Year
  Sex: Male

DRUGS (7)
  1. MIRTAZAPINE [Suspect]
     Dosage: 45 MG QD
  2. VENLAFAXINE HYDROCHLORIDE [Suspect]
     Indication: SCHIZOAFFECTIVE DISORDER
     Dosage: 225 MG
     Dates: end: 20031223
  3. SEROQUEL [Concomitant]
  4. CLOPENTHIXOL HYDROCHLORIDE [Concomitant]
  5. ORPHENDRINE HYDROCHLORIDE [Concomitant]
  6. ZOLPIDEM TARTRATE [Concomitant]
  7. .... [Concomitant]

REACTIONS (3)
  - ABDOMINAL PAIN [None]
  - DRUG INTERACTION [None]
  - HENOCH-SCHONLEIN PURPURA [None]
